FAERS Safety Report 7817985-3 (Version None)
Quarter: 2011Q4

REPORT INFORMATION
  Report Type: 
  Country: None (occurrence: None)
  Receive Date: 20111017
  Receipt Date: 20111010
  Transmission Date: 20120403
  Serious: Yes (Hospitalization, Other)
  Sender: FDA-Public Use
  Company Number: DE-GLAXOSMITHKLINE-D0073007A

PATIENT
  Sex: Female
  Weight: 3.3 kg

DRUGS (2)
  1. LAMOTRIGINE [Suspect]
     Indication: EPILEPSY
     Dosage: 100MG TWICE PER DAY
     Route: 064
  2. VALPROIC ACID [Suspect]
     Indication: EPILEPSY
     Dosage: 300MG TWICE PER DAY
     Route: 064

REACTIONS (6)
  - BLOOD GLUCOSE DECREASED [None]
  - MATERNAL EXPOSURE DURING PREGNANCY [None]
  - SOMNOLENCE [None]
  - FEEDING DISORDER NEONATAL [None]
  - EXPOSURE DURING BREAST FEEDING [None]
  - TREMOR [None]
